FAERS Safety Report 20639349 (Version 3)
Quarter: 2022Q2

REPORT INFORMATION
  Report Type: Spontaneous
  Country: MY (occurrence: MY)
  Receive Date: 20220326
  Receipt Date: 20220420
  Transmission Date: 20220721
  Serious: Yes (Hospitalization, Other)
  Sender: FDA-Public Use
  Company Number: MY-Accord-258516

PATIENT
  Age: 49 Year
  Sex: Male
  Weight: 48 kg

DRUGS (8)
  1. DILTIAZEM [Interacting]
     Active Substance: DILTIAZEM
     Indication: Hypertension
     Dates: start: 20210927
  2. CARBAMAZEPINE [Interacting]
     Active Substance: CARBAMAZEPINE
     Indication: Epilepsy
     Dates: start: 201104, end: 201110
  3. PREDNISOLONE [Concomitant]
     Active Substance: PREDNISOLONE
  4. VALPROATE SODIUM [Concomitant]
     Active Substance: VALPROATE SODIUM
  5. METOPROLOL [Concomitant]
     Active Substance: METOPROLOL
  6. CARDIPRIN [Concomitant]
  7. SIMVASTATIN [Concomitant]
     Active Substance: SIMVASTATIN
  8. TACROLIMUS [Concomitant]
     Active Substance: TACROLIMUS
     Indication: Immunosuppressant drug therapy
     Dates: start: 20210927

REACTIONS (9)
  - Neurological symptom [Recovered/Resolved]
  - Drug interaction [Unknown]
  - Lethargy [Recovered/Resolved]
  - Tinnitus [Recovered/Resolved]
  - Anticonvulsant drug level increased [Recovered/Resolved]
  - Gait disturbance [Recovered/Resolved]
  - Nystagmus [Recovered/Resolved]
  - Neurotoxicity [Recovered/Resolved]
  - Diplopia [Recovered/Resolved]

NARRATIVE: CASE EVENT DATE: 20211001
